FAERS Safety Report 13811517 (Version 2)
Quarter: 2025Q4

REPORT INFORMATION
  Report Type: Spontaneous
  Country: US (occurrence: US)
  Receive Date: 20170728
  Receipt Date: 20251219
  Transmission Date: 20260118
  Serious: No
  Sender: ROCHE
  Company Number: US-ROCHE-787951

PATIENT
  Sex: Female

DRUGS (1)
  1. BONIVA [Suspect]
     Active Substance: IBANDRONATE SODIUM
     Indication: Product used for unknown indication
     Dosage: FREQUENCY : PER MONTH

REACTIONS (4)
  - Dyspepsia [Recovered/Resolved]
  - Pain in extremity [Unknown]
  - Trismus [Unknown]
  - Jaw clicking [Not Recovered/Not Resolved]
